FAERS Safety Report 14840105 (Version 1)
Quarter: 2018Q2

REPORT INFORMATION
  Report Type: Spontaneous
  Country: DE (occurrence: DE)
  Receive Date: 20180503
  Receipt Date: 20180503
  Transmission Date: 20180711
  Serious: Yes (Hospitalization)
  Sender: FDA-Public Use
  Company Number: DE-CONCORDIA PHARMACEUTICALS INC.-E2B_00011533

PATIENT
  Age: 54 Year
  Sex: Female
  Weight: 98 kg

DRUGS (9)
  1. BISOPROLOL [Concomitant]
     Active Substance: BISOPROLOL
     Dosage: 5 MG, 2-0-0-0, TABLETTEN
     Route: 048
  2. TRIMIPRAMIN [Concomitant]
     Active Substance: TRIMIPRAMINE MALEATE
     Dosage: 25 MG, 0-0-1-0, TABLETTEN
     Route: 048
  3. LEFLON 20MG [Concomitant]
     Dosage: 20 MG, 1-0-0-0, TABLETTEN
     Route: 048
  4. COLECALCIFEROL [Concomitant]
     Active Substance: CHOLECALCIFEROL
     Dosage: 1000 IE, 1-0-0-0, TABLETTEN
     Route: 048
  5. RAMIPRIL/HYDROCHLOROTHIAZID [Concomitant]
     Active Substance: HYDROCHLOROTHIAZIDE\RAMIPRIL
     Dosage: 5|12.5 MG, 1-0-0-0, TABLETTEN
     Route: 048
  6. PREDNISOLONE. [Suspect]
     Active Substance: PREDNISOLONE
     Dosage: 250 MG, 1-0-0-0, TABLETTEN
     Route: 048
  7. MIRTAZAPIN [Concomitant]
     Active Substance: MIRTAZAPINE
     Dosage: 30 MG, 0-0-1-0, TABLETTEN
     Route: 048
  8. DULOXETIN [Concomitant]
     Active Substance: DULOXETINE
     Dosage: 60 MG, 1-0-0-0, KAPSELN
     Route: 048
  9. PANTOZOL [Concomitant]
     Active Substance: PANTOPRAZOLE SODIUM
     Dosage: 40 MG, 1-0-0-0, TABLETTEN
     Route: 048

REACTIONS (6)
  - Hyperglycaemia [Unknown]
  - Hypoacusis [Unknown]
  - Polydipsia [Unknown]
  - Thirst [Unknown]
  - Dizziness [Unknown]
  - Polyuria [Unknown]
